FAERS Safety Report 24298608 (Version 1)
Quarter: 2024Q3

REPORT INFORMATION
  Report Type: Spontaneous
  Country: CA (occurrence: CA)
  Receive Date: 20240909
  Receipt Date: 20240909
  Transmission Date: 20241016
  Serious: Yes (Other)
  Sender: B BRAUN
  Company Number: CA-B.Braun Medical Inc.-2161384

PATIENT
  Age: 66 Year
  Sex: Male

DRUGS (13)
  1. LIDOCAINE HYDROCHLORIDE [Suspect]
     Active Substance: LIDOCAINE HYDROCHLORIDE
  2. ASPIRIN [Suspect]
     Active Substance: ASPIRIN
  3. ROSUVASTATIN CALCIUM [Suspect]
     Active Substance: ROSUVASTATIN CALCIUM
  4. POTASSIUM CHLORIDE [Suspect]
     Active Substance: POTASSIUM CHLORIDE
  5. PANTOPRAZOLE SODIUM [Suspect]
     Active Substance: PANTOPRAZOLE SODIUM
  6. OLANZAPINE [Suspect]
     Active Substance: OLANZAPINE
  7. METFORMIN [Suspect]
     Active Substance: METFORMIN HYDROCHLORIDE
  8. MAGNESIUM OXIDE [Suspect]
     Active Substance: MAGNESIUM OXIDE
  9. FLUCONAZOLE [Suspect]
     Active Substance: FLUCONAZOLE
  10. FILGRASTIM [Suspect]
     Active Substance: FILGRASTIM
  11. DIMENHYDRINATE [Suspect]
     Active Substance: DIMENHYDRINATE
  12. CIPROFLOXACIN LACTATE [Suspect]
     Active Substance: CIPROFLOXACIN LACTATE
  13. AMLODIPINE\TELMISARTAN [Suspect]
     Active Substance: AMLODIPINE\TELMISARTAN

REACTIONS (1)
  - Febrile neutropenia [Unknown]
